FAERS Safety Report 7389123-5 (Version None)
Quarter: 2011Q2

REPORT INFORMATION
  Report Type: 
  Country: None (occurrence: None)
  Receive Date: 20110401
  Receipt Date: 20110324
  Transmission Date: 20111010
  Serious: Yes (Hospitalization)
  Sender: FDA-Public Use
  Company Number: US-ROCHE-768124

PATIENT
  Age: 67 Year
  Sex: Male
  Weight: 98.6 kg

DRUGS (19)
  1. BEVACIZUMAB [Suspect]
     Indication: PANCREATIC CARCINOMA
     Route: 042
     Dates: start: 20101115, end: 20110228
  2. CITRUCEL [Concomitant]
     Dosage: DOSE: 1 TBSP
     Route: 048
     Dates: start: 20101108
  3. LISINOPRIL [Concomitant]
     Route: 048
     Dates: start: 20101108
  4. ASCORBIC ACID [Concomitant]
     Route: 048
     Dates: start: 20101108
  5. CASODEX [Concomitant]
     Route: 048
     Dates: start: 20101115
  6. SIMVASTATIN [Concomitant]
     Dosage: EVERY EVENING
     Route: 048
     Dates: start: 20101115
  7. DECADRON [Concomitant]
     Dosage: TWO TABLETS 12 HOUR. 1 HOUR BEFORE CHEMO AND THE NIGHT AFTER CHEMO
     Route: 048
     Dates: start: 20101108, end: 20110304
  8. DOCETAXEL [Suspect]
     Indication: PANCREATIC CARCINOMA
     Route: 042
     Dates: start: 20101115, end: 20110118
  9. HYALURONATE SODIUM [Concomitant]
     Dosage: DOSE: 1TSP A DAY
     Route: 048
     Dates: start: 20101108
  10. ACETYLSALICYLIC ACID [Concomitant]
     Route: 048
     Dates: start: 20101108
  11. COMPAZINE [Concomitant]
     Route: 048
  12. COQ-10 [Concomitant]
     Route: 054
     Dates: start: 20101108
  13. GLUCOSAMINE [Concomitant]
     Dosage: DOSE: TWO DAILY.
     Route: 048
     Dates: start: 20101108
  14. NYSTATINE [Concomitant]
     Dosage: DRUG NYSTATIN MOUTHWASH
     Route: 048
     Dates: start: 20101108
  15. ZINC SULFATE [Concomitant]
     Route: 048
     Dates: start: 20101108
  16. VITAMIN B COMPLEX CAP [Concomitant]
     Route: 048
     Dates: start: 20101108
  17. MIRALAX [Concomitant]
     Route: 048
     Dates: start: 20101108
  18. FOLIC ACID [Concomitant]
     Route: 048
     Dates: start: 20101108
  19. SELENIUM [Concomitant]
     Route: 048
     Dates: start: 20101108

REACTIONS (8)
  - RED BLOOD CELL COUNT DECREASED [None]
  - HAEMOGLOBIN DECREASED [None]
  - CONVULSION [None]
  - HYPERTENSION [None]
  - PLATELET COUNT DECREASED [None]
  - BLINDNESS [None]
  - PROTEINURIA [None]
  - HAEMATOCRIT DECREASED [None]
